FAERS Safety Report 5351038-1 (Version None)
Quarter: 2007Q2

REPORT INFORMATION
  Report Type: 
  Country: None (occurrence: None)
  Receive Date: 20070606
  Receipt Date: 20070521
  Transmission Date: 20071010
  Serious: Yes (Hospitalization)
  Sender: FDA-Public Use
  Company Number: 2007000416

PATIENT
  Age: 62 Year
  Weight: 117.4816 kg

DRUGS (6)
  1. ERLOTINIB (TABLET) [Suspect]
     Indication: COLORECTAL CANCER
     Dosage: 150 MG (QD); ORAL
     Route: 048
     Dates: start: 20070129
  2. TOPOTECAN (TOPOTECAN) [Suspect]
     Indication: COLORECTAL CANCER
     Dosage: 2.75 MG, INTRAVENOUS
     Route: 042
     Dates: start: 20070129
  3. ARANESP [Concomitant]
  4. LOMOTIL [Concomitant]
  5. ZOMETA [Concomitant]
  6. CIPRO [Concomitant]

REACTIONS (10)
  - ANAEMIA [None]
  - BACTERIAL INFECTION [None]
  - BLOOD CULTURE POSITIVE [None]
  - CHEST PAIN [None]
  - DEHYDRATION [None]
  - FEBRILE NEUTROPENIA [None]
  - HYPERTENSION [None]
  - NAUSEA [None]
  - VOMITING [None]
  - WHITE BLOOD CELL COUNT DECREASED [None]
